FAERS Safety Report 6667189-5 (Version None)
Quarter: 2010Q2

REPORT INFORMATION
  Report Type: 
  Country: None (occurrence: None)
  Receive Date: 20100401
  Receipt Date: 20100401
  Transmission Date: 20101027
  Serious: Yes (Other)
  Sender: FDA-Public Use
  Company Number: None

PATIENT
  Age: 21 Year
  Sex: Male
  Weight: 90.7194 kg

DRUGS (1)
  1. CHANTIX [Suspect]
     Indication: SMOKING CESSATION THERAPY
     Dosage: PO
     Route: 048
     Dates: start: 20100309, end: 20100331

REACTIONS (6)
  - AGGRESSION [None]
  - BIPOLAR DISORDER [None]
  - DELUSION [None]
  - DEPRESSION [None]
  - DRUG INTERACTION [None]
  - SUICIDE ATTEMPT [None]
